FAERS Safety Report 4673146-0 (Version None)
Quarter: 2005Q2

REPORT INFORMATION
  Report Type: 
  Country: None (occurrence: None)
  Receive Date: 20050525
  Receipt Date: 20050107
  Transmission Date: 20051028
  Serious: Yes (Life-Threatening, Other)
  Sender: FDA-Public Use
  Company Number: US-GLAXOSMITHKLINE-A0539846A

PATIENT
  Sex: Male

DRUGS (2)
  1. BACTROBAN [Suspect]
     Route: 061
     Dates: start: 20041221, end: 20041221
  2. NO CONCURRENT MEDICATION [Concomitant]

REACTIONS (4)
  - ANAPHYLACTIC REACTION [None]
  - DYSPNOEA [None]
  - PHARYNGEAL OEDEMA [None]
  - SWELLING FACE [None]
